FAERS Safety Report 6311601-8 (Version None)
Quarter: 2009Q3

REPORT INFORMATION
  Report Type: 
  Country: None (occurrence: None)
  Receive Date: 20090817
  Receipt Date: 20090811
  Transmission Date: 20100115
  Serious: Yes (Hospitalization)
  Sender: FDA-Public Use
  Company Number: A0801617A

PATIENT
  Age: 81 Year
  Sex: Male

DRUGS (6)
  1. ADVAIR HFA [Suspect]
     Indication: CHRONIC OBSTRUCTIVE PULMONARY DISEASE
     Dosage: 1PUFF TWICE PER DAY
     Route: 055
     Dates: start: 20081201
  2. NEBULIZER [Concomitant]
  3. ALBUTEROL [Concomitant]
  4. PLAVIX [Concomitant]
  5. BLOOD PRESSURE MEDICATION [Concomitant]
  6. OTHER MEDICATIONS [Concomitant]

REACTIONS (2)
  - COUGH [None]
  - PNEUMONIA [None]
